FAERS Safety Report 11078082 (Version 1)
Quarter: 2015Q2

REPORT INFORMATION
  Report Type: Spontaneous
  Country: PH (occurrence: PH)
  Receive Date: 20150430
  Receipt Date: 20150430
  Transmission Date: 20150821
  Serious: Yes (Death, Hospitalization)
  Sender: FDA-Public Use
  Company Number: PH-JNJFOC-20150422388

PATIENT
  Age: 67 Year
  Sex: Male

DRUGS (1)
  1. ZYTIGA [Suspect]
     Active Substance: ABIRATERONE ACETATE
     Indication: PROSTATE CANCER STAGE IV
     Route: 048

REACTIONS (6)
  - Haemorrhage intracranial [Fatal]
  - Asthenia [Fatal]
  - Oesophagitis [Fatal]
  - Sensory disturbance [Fatal]
  - Haematochezia [Fatal]
  - Hypertension [Fatal]
